FAERS Safety Report 10565235 (Version 1)
Quarter: 2014Q4

REPORT INFORMATION
  Report Type: Spontaneous
  Country: JP (occurrence: None)
  Receive Date: 20141103
  Receipt Date: 20141103
  Transmission Date: 20150529
  Serious: Yes (Hospitalization)
  Sender: FDA-Public Use
  Company Number: VAL_03501_2014

PATIENT
  Age: 62 Year
  Sex: Female

DRUGS (1)
  1. CARBAMAZEPINE. [Suspect]
     Active Substance: CARBAMAZEPINE
     Indication: TRIGEMINAL NEURALGIA

REACTIONS (10)
  - Lymphadenopathy [None]
  - Dermatitis exfoliative [None]
  - Human herpesvirus 6 infection [None]
  - Pyrexia [None]
  - Lymphocyte transformation test positive [None]
  - No therapeutic response [None]
  - Pneumonia [None]
  - Hyperkeratosis [None]
  - Skin hyperpigmentation [None]
  - Rash generalised [None]
